FAERS Safety Report 8769462 (Version 1)
Quarter: 2012Q4

REPORT INFORMATION
  Report Type: 
  Country: FR (occurrence: FR)
  Receive Date: 20120905
  Receipt Date: 20120905
  Transmission Date: 20130627
  Serious: Yes (Life-Threatening, Hospitalization)
  Sender: FDA-Public Use
  Company Number: FR-PFIZER INC-2012183522

PATIENT
  Age: 71 Year
  Sex: Male

DRUGS (4)
  1. FLUOROURACILE PFIZER [Suspect]
     Indication: COLON CANCER
     Dosage: 2400 mg, single
     Route: 042
     Dates: start: 20120604, end: 20120605
  2. IRINOTECAN [Suspect]
     Indication: COLON CANCER
     Dosage: 360 mg, single
     Route: 042
     Dates: start: 20120604, end: 20120604
  3. AVASTIN [Suspect]
     Indication: COLON CANCER
     Dosage: 450 mg, single
     Route: 042
     Dates: start: 20120604, end: 20120604
  4. FOLINIC ACID [Concomitant]
     Indication: COLON CANCER
     Dosage: UNK
     Dates: start: 20120604

REACTIONS (2)
  - Diarrhoea [Recovered/Resolved]
  - Hypokalaemia [Recovered/Resolved]
